FAERS Safety Report 5326175-8 (Version None)
Quarter: 2007Q2

REPORT INFORMATION
  Report Type: 
  Country: None (occurrence: None)
  Receive Date: 20070516
  Receipt Date: 20070508
  Transmission Date: 20071010
  Serious: Yes (Death, Life-Threatening)
  Sender: FDA-Public Use
  Company Number: US-ROCHE-465799

PATIENT
  Age: 61 Year
  Sex: Male
  Weight: 113.4 kg

DRUGS (14)
  1. CAPECITABINE [Suspect]
     Dosage: BID X 14 DAYS
     Route: 048
     Dates: start: 20060926, end: 20061013
  2. BEVACIZUMAB [Suspect]
     Dosage: GIVEN ON DAY ONE OF EVERY THREE WEEK CYCLE.
     Route: 042
     Dates: start: 20060926, end: 20061013
  3. OXALIPLATIN [Suspect]
     Dosage: GIVEN ON DAY ONE OF EVERY THREE WEEK CYCLE.
     Route: 042
     Dates: start: 20060926, end: 20061013
  4. HYDROCHLOROTHIAZIDE [Concomitant]
  5. ASPIRIN [Concomitant]
     Dates: start: 20030101, end: 20061013
  6. NITROGLYCERIN [Concomitant]
     Dosage: PRN
     Dates: start: 20050101, end: 20061013
  7. TENORMIN [Concomitant]
     Dates: start: 20060101, end: 20061013
  8. VASOTEC [Concomitant]
     Dates: start: 20000101, end: 20061013
  9. TRICOR [Concomitant]
     Dates: start: 20040101, end: 20061013
  10. GLIPIZIDE [Concomitant]
     Dates: start: 20000101, end: 20061013
  11. AVANDIA [Concomitant]
     Dates: start: 20040101, end: 20061013
  12. METFORMIN HCL [Concomitant]
     Dates: start: 20040101, end: 20061013
  13. FLONASE [Concomitant]
     Dosage: PRN NASAL SPRAY
     Dates: start: 20030101, end: 20061013
  14. OMEGA III FATTY ACID [Concomitant]
     Dates: start: 20060101, end: 20061013

REACTIONS (4)
  - DEHYDRATION [None]
  - DIABETIC KETOACIDOSIS [None]
  - STAPHYLOCOCCAL SEPSIS [None]
  - VOMITING [None]
